FAERS Safety Report 7479462-1 (Version None)
Quarter: 2011Q2

REPORT INFORMATION
  Report Type: 
  Country: None (occurrence: None)
  Receive Date: 20110513
  Receipt Date: 20081129
  Transmission Date: 20111010
  Serious: Yes (Hospitalization, Other)
  Sender: FDA-Public Use
  Company Number: US-BAYER-200840451NA

PATIENT
  Age: 65 Year
  Sex: Male
  Weight: 86.168 kg

DRUGS (8)
  1. LOPRESSOR [Concomitant]
  2. LASIX [Concomitant]
     Dosage: 20 MG, UNK
     Route: 042
     Dates: start: 20061128, end: 20061128
  3. TRASYLOL [Suspect]
     Indication: CARDIAC OPERATION
     Dosage: 200 ML CARDIOPULMONARY BYPASS PRIME
     Route: 042
     Dates: start: 20061128, end: 20061128
  4. ANCEF [Concomitant]
     Dosage: 2 G, UNK
     Route: 042
     Dates: start: 20061128, end: 20061128
  5. DIOVAN HCT [Concomitant]
  6. TRASYLOL [Suspect]
     Indication: CORONARY ARTERY BYPASS
  7. HEPARIN [Concomitant]
     Dosage: 40000 U, UNK
     Route: 042
     Dates: start: 20061128, end: 20061128
  8. VANCOMYCIN [Concomitant]
     Dosage: 1 G, UNK
     Route: 042
     Dates: start: 20061128, end: 20061128

REACTIONS (11)
  - RENAL IMPAIRMENT [None]
  - INJURY [None]
  - ANHEDONIA [None]
  - VISUAL IMPAIRMENT [None]
  - PAIN [None]
  - RENAL FAILURE [None]
  - ANXIETY [None]
  - FEAR [None]
  - EMBOLIC CEREBRAL INFARCTION [None]
  - UNEVALUABLE EVENT [None]
  - DEPRESSION [None]
